FAERS Safety Report 25927592 (Version 1)
Quarter: 2025Q4

REPORT INFORMATION
  Report Type: Spontaneous
  Country: US (occurrence: US)
  Receive Date: 20251016
  Receipt Date: 20251016
  Transmission Date: 20260117
  Serious: No
  Sender: SANOFI AVENTIS
  Company Number: US-SA-2025SA306104

PATIENT
  Sex: Male
  Weight: 146.82 kg

DRUGS (25)
  1. DUPIXENT [Suspect]
     Active Substance: DUPILUMAB
     Dosage: 300 MG, QOW
     Route: 058
  2. LINZESS [Concomitant]
     Active Substance: LINACLOTIDE
  3. BRILINTA [Concomitant]
     Active Substance: TICAGRELOR
  4. AMLODIPINE BESYLATE [Concomitant]
     Active Substance: AMLODIPINE BESYLATE
  5. LISINOPRIL [Concomitant]
     Active Substance: LISINOPRIL
  6. MOUNJARO [Concomitant]
     Active Substance: TIRZEPATIDE
  7. TRIAMCINOLONE ACETONIDE [Concomitant]
     Active Substance: TRIAMCINOLONE ACETONIDE
  8. TACROLIMUS [Concomitant]
     Active Substance: TACROLIMUS
  9. ALBUTEROL SULFATE [Concomitant]
     Active Substance: ALBUTEROL SULFATE
  10. TRESIBA [Concomitant]
     Active Substance: INSULIN DEGLUDEC
  11. JARDIANCE [Concomitant]
     Active Substance: EMPAGLIFLOZIN
  12. NOVOLIN N [Concomitant]
     Active Substance: INSULIN HUMAN
  13. MELATONIN [Concomitant]
     Active Substance: MELATONIN
  14. SOTALOL [Concomitant]
     Active Substance: SOTALOL
  15. VOLTAREN ARTHRITIS PAIN [Concomitant]
     Active Substance: DICLOFENAC SODIUM
  16. HYDROCHLOROTHIAZIDE [Concomitant]
     Active Substance: HYDROCHLOROTHIAZIDE
  17. METFORMIN HYDROCHLORIDE [Concomitant]
     Active Substance: METFORMIN HYDROCHLORIDE
  18. VITAMIN D3 [Concomitant]
     Active Substance: CHOLECALCIFEROL
  19. ATORVASTATIN CALCIUM [Concomitant]
     Active Substance: ATORVASTATIN CALCIUM
  20. GABAPENTIN [Concomitant]
     Active Substance: GABAPENTIN
  21. ASPIRIN [Concomitant]
     Active Substance: ASPIRIN
  22. FLONASE ALLERGY RELIEF [Concomitant]
     Active Substance: FLUTICASONE PROPIONATE
  23. CYCLOBENZAPRINE HYDROCHLORIDE [Concomitant]
     Active Substance: CYCLOBENZAPRINE HYDROCHLORIDE
  24. OMEPRAZOLE [Concomitant]
     Active Substance: OMEPRAZOLE
  25. BUSPIRONE HCL [Concomitant]
     Active Substance: BUSPIRONE HYDROCHLORIDE

REACTIONS (1)
  - Pruritus [Unknown]
